FAERS Safety Report 9316361 (Version 4)
Quarter: 2014Q2

REPORT INFORMATION
  Report Type: Spontaneous
  Country: US (occurrence: US)
  Receive Date: 20130530
  Receipt Date: 20140609
  Transmission Date: 20141212
  Serious: Yes (Hospitalization, Other)
  Sender: FDA-Public Use
  Company Number: US-BAYER-2013-062802

PATIENT
  Age: 32 Year
  Sex: Female
  Weight: 65.31 kg

DRUGS (1)
  1. MIRENA [Suspect]
     Indication: CONTRACEPTION
     Dosage: UNK
     Route: 015
     Dates: start: 200206, end: 20130208

REACTIONS (21)
  - Uterine perforation [None]
  - Cholestasis of pregnancy [None]
  - Bipolar disorder [None]
  - Cardiac failure congestive [None]
  - Pregnancy with contraceptive device [None]
  - Drug ineffective [None]
  - Device misuse [None]
  - Anxiety [None]
  - Off label use [None]
  - Pelvic pain [None]
  - Abdominal pain [None]
  - Infection [None]
  - Pain [None]
  - Injury [None]
  - Emotional distress [None]
  - Depression [None]
  - Postpartum depression [None]
  - Device breakage [None]
  - Device issue [None]
  - Menorrhagia [None]
  - Device failure [None]
